FAERS Safety Report 9129532 (Version 2)
Quarter: 2013Q2

REPORT INFORMATION
  Report Type: Spontaneous
  Country: BR (occurrence: BR)
  Receive Date: 20130228
  Receipt Date: 20130620
  Transmission Date: 20140414
  Serious: Yes (Hospitalization)
  Sender: FDA-Public Use
  Company Number: BR-PFIZER INC-2013069183

PATIENT
  Sex: Male

DRUGS (6)
  1. CITALOR [Suspect]
     Dosage: 10 MG, UNK
     Route: 048
     Dates: start: 2012
  2. CAPTOPRIL [Concomitant]
  3. DEPAKOTE [Concomitant]
  4. MERITOR [Concomitant]
  5. ONGLYZA [Concomitant]
  6. RIVOTRIL [Concomitant]

REACTIONS (1)
  - Psychiatric decompensation [Not Recovered/Not Resolved]
